FAERS Safety Report 9308368 (Version 1)
Quarter: 2013Q2

REPORT INFORMATION
  Report Type: Report from Study
  Country: FR (occurrence: FR)
  Receive Date: 20130524
  Receipt Date: 20130524
  Transmission Date: 20140414
  Serious: Yes (Death)
  Sender: FDA-Public Use
  Company Number: FR-VIIV HEALTHCARE LIMITED-B0894007A

PATIENT
  Age: 63 Year
  Sex: Male
  Weight: 82.3 kg

DRUGS (8)
  1. MARAVIROC [Suspect]
     Indication: HIV INFECTION
     Dosage: 300MG TWICE PER DAY
     Route: 048
     Dates: start: 20120530, end: 20120918
  2. LOVENOX [Concomitant]
     Indication: THROMBOSIS PROPHYLAXIS
     Dates: start: 20120111
  3. ISENTRESS [Concomitant]
     Indication: HIV INFECTION
     Dates: start: 20120524
  4. BRICANYL [Concomitant]
     Indication: RESPIRATORY FAILURE
     Dates: start: 20050315
  5. KARDEGIC [Concomitant]
     Indication: PROPHYLAXIS
     Dates: start: 20080624
  6. SERETIDE [Concomitant]
     Indication: RESPIRATORY FAILURE
     Dates: start: 20020201
  7. IMOVANE [Concomitant]
     Indication: INSOMNIA
     Dates: start: 20011204
  8. APROVEL [Concomitant]
     Indication: HYPERTENSION
     Dates: start: 20121120

REACTIONS (1)
  - Chronic obstructive pulmonary disease [Fatal]
